FAERS Safety Report 23612174 (Version 2)
Quarter: 2024Q1

REPORT INFORMATION
  Report Type: Spontaneous
  Country: CA (occurrence: CA)
  Receive Date: 20240308
  Receipt Date: 20240328
  Transmission Date: 20240409
  Serious: Yes (Other)
  Sender: FDA-Public Use
  Company Number: CA-ABBVIE-5662678

PATIENT
  Age: 64 Year
  Sex: Male

DRUGS (1)
  1. EPCORITAMAB [Suspect]
     Active Substance: EPCORITAMAB
     Indication: High-grade B-cell lymphoma
     Dosage: 48 MG DAY 15 AND DAY 22
     Route: 058
     Dates: start: 20240130, end: 20240229

REACTIONS (1)
  - Palliative care [Unknown]

NARRATIVE: CASE EVENT DATE: 20240101
